FAERS Safety Report 9017092 (Version 2)
Quarter: 2013Q1

REPORT INFORMATION
  Report Type: Report from Study
  Country: CZ (occurrence: CZ)
  Receive Date: 20130117
  Receipt Date: 20130122
  Transmission Date: 20140127
  Serious: Yes (Other)
  Sender: FDA-Public Use
  Company Number: PHHY2013CZ003826

PATIENT
  Age: 79 Year
  Sex: Female

DRUGS (7)
  1. TASIGNA [Suspect]
     Indication: CHRONIC MYELOID LEUKAEMIA
     Dosage: 800 MG, QD
     Dates: start: 20120503, end: 20130107
  2. TASIGNA [Suspect]
     Dosage: 600 MG, DAILY
     Dates: start: 20130114
  3. WARFARIN [Concomitant]
  4. DIGOXIN [Concomitant]
  5. OLFEN [Concomitant]
  6. HYPNOGEN [Concomitant]
  7. CITALEC [Concomitant]

REACTIONS (4)
  - Electrocardiogram QT prolonged [Recovered/Resolved]
  - Toxicity to various agents [Unknown]
  - Hyperbilirubinaemia [Recovered/Resolved]
  - Hyperhidrosis [Unknown]
